FAERS Safety Report 4620745-8 (Version None)
Quarter: 2005Q2

REPORT INFORMATION
  Report Type: 
  Country: None (occurrence: None)
  Receive Date: 20050321
  Receipt Date: 20040708
  Transmission Date: 20051028
  Serious: Yes (Other)
  Sender: FDA-Public Use
  Company Number: 2004-07-0377

PATIENT
  Age: 54 Year
  Sex: Male
  Weight: 81.6475 kg

DRUGS (3)
  1. PEG-INTRON [Suspect]
     Indication: HEPATITIS C
     Dosage: QW SUBCUTANEOUS
     Route: 058
     Dates: start: 20040707
  2. REBETOL [Suspect]
     Indication: HEPATITIS C
     Dosage: 600 MG BID ORAL
     Route: 048
     Dates: start: 20040707
  3. MICARDIS [Concomitant]

REACTIONS (5)
  - CHILLS [None]
  - FATIGUE [None]
  - INFLUENZA LIKE ILLNESS [None]
  - MALAISE [None]
  - VOMITING [None]
